FAERS Safety Report 4935087-0 (Version None)
Quarter: 2006Q1

REPORT INFORMATION
  Report Type: 
  Country: None (occurrence: None)
  Receive Date: 20060303
  Receipt Date: 20060303
  Transmission Date: 20060701
  Serious: No
  Sender: FDA-Public Use
  Company Number: None

PATIENT
  Sex: Female

DRUGS (5)
  1. BREVITAL SODIUM [Suspect]
     Indication: ELECTROCONVULSIVE THERAPY
     Dosage: 100 MG IV
     Route: 042
     Dates: start: 20060201
  2. BREVITAL SODIUM [Suspect]
     Indication: ELECTROCONVULSIVE THERAPY
     Dosage: 100 MG IV
     Route: 042
     Dates: start: 20060215
  3. BREVITAL SODIUM [Suspect]
     Indication: ELECTROCONVULSIVE THERAPY
     Dosage: 100 MG IV
     Route: 042
     Dates: start: 20060301
  4. SUCCINYLCHOLINE CHLORIDE [Concomitant]
  5. ESMOIAL [Concomitant]

REACTIONS (3)
  - HYPERHIDROSIS [None]
  - MALAISE [None]
  - NAUSEA [None]
